FAERS Safety Report 18576670 (Version 1)
Quarter: 2020Q4

REPORT INFORMATION
  Report Type: Spontaneous
  Country: PL (occurrence: PL)
  Receive Date: 20201203
  Receipt Date: 20201203
  Transmission Date: 20210114
  Serious: Yes (Other)
  Sender: FDA-Public Use
  Company Number: PL-MYLANLABS-2020M1098713

PATIENT
  Age: 62 Year
  Sex: Male

DRUGS (3)
  1. CISPLATIN. [Suspect]
     Active Substance: CISPLATIN
     Indication: LUNG SQUAMOUS CELL CARCINOMA STAGE III
     Dosage: UNK UNK, CYCLE (CYCLICAL: REDUCE THE DOSES AND ENDED HIS TREATMENT IN DEC-2016)
     Route: 065
     Dates: start: 201609, end: 201612
  2. PEMBROLIZUMAB. [Concomitant]
     Active Substance: PEMBROLIZUMAB
     Indication: SQUAMOUS CELL CARCINOMA
     Dosage: 200 MILLIGRAM, Q3W
     Route: 065
     Dates: start: 201801
  3. VINORELBINE [Suspect]
     Active Substance: VINORELBINE TARTRATE
     Indication: LUNG SQUAMOUS CELL CARCINOMA STAGE III
     Dosage: UNK, CYCLE (CYCLICAL: REDUCE THE DOSES AND ENDED HIS TREATMENT IN DEC-2016)
     Route: 065
     Dates: start: 201609, end: 201612

REACTIONS (2)
  - Therapy partial responder [Unknown]
  - Anaemia [Unknown]

NARRATIVE: CASE EVENT DATE: 2016
